FAERS Safety Report 5464737-8 (Version None)
Quarter: 2007Q3

REPORT INFORMATION
  Report Type: 
  Country: None (occurrence: None)
  Receive Date: 20070820
  Receipt Date: 20070531
  Transmission Date: 20080115
  Serious: No
  Sender: FDA-Public Use
  Company Number: TPA2007A00687

PATIENT
  Age: 45 Year
  Sex: Male
  Weight: 111.1313 kg

DRUGS (4)
  1. ROZEREM [Suspect]
     Indication: POOR QUALITY SLEEP
     Dosage: 8 MG, QHS, PER ORAL
     Route: 048
     Dates: start: 20070314, end: 20070101
  2. VICODIN [Concomitant]
  3. XANAX [Concomitant]
  4. ADDERALL XR (DEXAMFETAMINE SULFATE, AMFETAMINE SULFATE, DEXAMFETAMINE [Concomitant]

REACTIONS (3)
  - DRUG INEFFECTIVE [None]
  - INITIAL INSOMNIA [None]
  - SPONTANEOUS PENILE ERECTION [None]
